FAERS Safety Report 6155263-1 (Version None)
Quarter: 2009Q2

REPORT INFORMATION
  Report Type: 
  Country: None (occurrence: None)
  Receive Date: 20090415
  Receipt Date: 20090401
  Transmission Date: 20091009
  Serious: Yes (Hospitalization)
  Sender: FDA-Public Use
  Company Number: SE-ASTRAZENECA-2009SE01482

PATIENT
  Age: 940 Month
  Sex: Male

DRUGS (5)
  1. ATENOLOL [Suspect]
     Route: 048
     Dates: end: 20090101
  2. ATENOLOL [Suspect]
     Route: 048
     Dates: start: 20090101, end: 20090101
  3. ARICEPT [Suspect]
     Route: 048
     Dates: end: 20090120
  4. AVODART [Suspect]
     Indication: PROSTATISM
     Route: 048
     Dates: end: 20090120
  5. TROMBYL [Concomitant]

REACTIONS (1)
  - CONFUSIONAL STATE [None]
